FAERS Safety Report 22135676 (Version 1)
Quarter: 2023Q1

REPORT INFORMATION
  Report Type: Report from Study
  Country: AU (occurrence: AU)
  Receive Date: 20230324
  Receipt Date: 20230324
  Transmission Date: 20230417
  Serious: Yes (Death, Hospitalization, Other)
  Sender: FDA-Public Use
  Company Number: AU-JNJFOC-20230356472

PATIENT
  Age: 63 Year
  Sex: Female

DRUGS (3)
  1. MACITENTAN [Suspect]
     Active Substance: MACITENTAN
     Indication: Pulmonary arterial hypertension
     Route: 048
  2. SELEXIPAG [Suspect]
     Active Substance: SELEXIPAG
     Indication: Pulmonary arterial hypertension
     Route: 048
  3. SILDENAFIL [Concomitant]
     Active Substance: SILDENAFIL
     Indication: Pulmonary arterial hypertension
     Route: 048

REACTIONS (13)
  - Death [Fatal]
  - Fall [Unknown]
  - Postoperative wound infection [Unknown]
  - Necrosis [Unknown]
  - Pain [Unknown]
  - Femur fracture [Unknown]
  - Post procedural hypotension [Unknown]
  - Urinary retention [Unknown]
  - Acute kidney injury [Unknown]
  - Delirium [Recovering/Resolving]
  - Right ventricular failure [Unknown]
  - Pneumonia [Unknown]
  - Constipation [Recovered/Resolved]

NARRATIVE: CASE EVENT DATE: 20230301
